FAERS Safety Report 9530721 (Version 1)
Quarter: 2013Q3

REPORT INFORMATION
  Report Type: Spontaneous
  Country: TW (occurrence: TW)
  Receive Date: 20130918
  Receipt Date: 20130918
  Transmission Date: 20140515
  Serious: Yes (Other)
  Sender: FDA-Public Use
  Company Number: TW-JNJFOC-20130903373

PATIENT
  Age: 30 Year
  Sex: Female

DRUGS (1)
  1. NICORETTE INHALER 10 MG [Suspect]
     Indication: PRODUCT USED FOR UNKNOWN INDICATION
     Route: 055
     Dates: start: 20130820

REACTIONS (1)
  - Anaphylactic reaction [Recovered/Resolved]
